FAERS Safety Report 5625482-9 (Version None)
Quarter: 2008Q1

REPORT INFORMATION
  Report Type: 
  Country: None (occurrence: None)
  Receive Date: 20080207
  Receipt Date: 20080129
  Transmission Date: 20080703
  Serious: Yes (Death, Life-Threatening)
  Sender: FDA-Public Use
  Company Number: WAES 0801USA05662

PATIENT
  Age: 64 Year
  Sex: Female
  Weight: 53.978 kg

DRUGS (12)
  1. DECADRON [Suspect]
     Indication: NON-SMALL CELL LUNG CANCER
     Dosage: 8 MG/BID/PO
     Route: 048
     Dates: start: 20070901, end: 20071031
  2. DECADRON [Suspect]
     Indication: NON-SMALL CELL LUNG CANCER
     Dosage: 12 MG/DAILY/IV
     Route: 042
     Dates: start: 20070901, end: 20071029
  3. SU011248 L-MALATE SALT 37.5 MG [Suspect]
     Indication: NON-SMALL CELL LUNG CANCER
     Dosage: 37.5 MG/DAILY/PO
     Route: 048
     Dates: start: 20071018, end: 20071030
  4. CYMBALTA [Concomitant]
  5. DIOVAN [Concomitant]
  6. KEPPRA [Concomitant]
  7. LIDODERM [Concomitant]
  8. MYCELEX [Concomitant]
  9. MYLANTA [Concomitant]
  10. PHENERGAN (PROMETHAZINE HYDROCHL [Concomitant]
  11. PREVACID [Concomitant]
  12. SENOKOT-S TABLETS [Concomitant]

REACTIONS (2)
  - DISEASE PROGRESSION [None]
  - DUODENAL ULCER PERFORATION [None]
